FAERS Safety Report 13391901 (Version 1)
Quarter: 2017Q1

REPORT INFORMATION
  Report Type: Spontaneous
  Country: ES (occurrence: ES)
  Receive Date: 20170331
  Receipt Date: 20170331
  Transmission Date: 20170429
  Serious: Yes (Hospitalization)
  Sender: FDA-Public Use
  Company Number: ES-TELIGENT, INC-IGIL20170118

PATIENT
  Age: 3 Month
  Sex: Female

DRUGS (1)
  1. RANITIDINE HYDROCHLORIDE. [Suspect]
     Active Substance: RANITIDINE HYDROCHLORIDE
     Indication: GASTROOESOPHAGEAL REFLUX DISEASE
     Dosage: 4 MG/KG/DAY, DIVIDED TWICE DAILY
     Route: 065

REACTIONS (3)
  - Lymphocytosis [Recovered/Resolved]
  - Gaze palsy [Recovered/Resolved]
  - Nystagmus [Recovered/Resolved]
